FAERS Safety Report 5144998-5 (Version None)
Quarter: 2006Q4

REPORT INFORMATION
  Report Type: 
  Country: None (occurrence: None)
  Receive Date: 20061107
  Receipt Date: 20060403
  Transmission Date: 20070319
  Serious: Yes (Death, Life-Threatening, Hospitalization)
  Sender: FDA-Public Use
  Company Number: US-BAYER-200612297BWH

PATIENT
  Age: 83 Year
  Sex: Male
  Weight: 84 kg

DRUGS (16)
  1. TRASYLOL [Suspect]
     Indication: CORONARY ARTERY BYPASS
     Dosage: UNIT DOSE: 2000000 KIU
     Route: 042
     Dates: start: 20051218
  2. HEPARIN [Concomitant]
     Route: 042
  3. HEPARIN [Concomitant]
     Route: 042
  4. HEPARIN [Concomitant]
     Route: 042
  5. PROTAMINE SULFATE [Concomitant]
  6. MANNITOL [Concomitant]
  7. BICARBONATE [Concomitant]
  8. SOLU-MEDROL [Concomitant]
  9. I.V. SOLUTION NOS [Concomitant]
  10. ASPIRIN [Concomitant]
  11. NITROGLYCERIN [Concomitant]
     Route: 042
  12. LOPRESSOR [Concomitant]
  13. ISOSORBIDE [Concomitant]
  14. PROCARDIA [Concomitant]
  15. PROSCAR [Concomitant]
  16. TOPROL-XL [Concomitant]

REACTIONS (18)
  - ACTIVATED PARTIAL THROMBOPLASTIN TIME PROLONGED [None]
  - BLOOD PRESSURE DECREASED [None]
  - BLOOD PRESSURE INCREASED [None]
  - CEREBROVASCULAR ACCIDENT [None]
  - COAGULATION TIME SHORTENED [None]
  - CORONARY ARTERY DISEASE [None]
  - DEATH [None]
  - DIALYSIS [None]
  - LIFE SUPPORT [None]
  - MITRAL VALVE INCOMPETENCE [None]
  - NOSOCOMIAL INFECTION [None]
  - PLATELET COUNT DECREASED [None]
  - PROTHROMBIN TIME PROLONGED [None]
  - PULMONARY MASS [None]
  - RENAL FAILURE ACUTE [None]
  - RESPIRATORY FAILURE [None]
  - SINUS TACHYCARDIA [None]
  - THROMBOCYTOPENIA [None]
